FAERS Safety Report 21768910 (Version 2)
Quarter: 2022Q4

REPORT INFORMATION
  Report Type: Report from Study
  Country: US (occurrence: US)
  Receive Date: 20221222
  Receipt Date: 20221227
  Transmission Date: 20230112
  Serious: Yes (Death, Other)
  Sender: FDA-Public Use
  Company Number: US-GILEAD-2022-0605990

PATIENT
  Age: 80 Year
  Sex: Female

DRUGS (3)
  1. AMBRISENTAN [Suspect]
     Active Substance: AMBRISENTAN
     Indication: Pulmonary arterial hypertension
     Dosage: 5 MG UNK
     Route: 065
     Dates: start: 20180803
  2. AMBRISENTAN [Suspect]
     Active Substance: AMBRISENTAN
     Indication: Systemic scleroderma
     Dosage: 5 MG, QD
     Route: 065
     Dates: start: 202112
  3. AMBRISENTAN [Suspect]
     Active Substance: AMBRISENTAN
     Indication: Cor pulmonale

REACTIONS (4)
  - Death [Fatal]
  - Cerebrovascular accident [Unknown]
  - Cerebrovascular accident [Unknown]
  - Illness [Unknown]

NARRATIVE: CASE EVENT DATE: 20221101
